FAERS Safety Report 15958674 (Version 1)
Quarter: 2019Q1

REPORT INFORMATION
  Report Type: Spontaneous
  Country: US (occurrence: US)
  Receive Date: 20190213
  Receipt Date: 20190213
  Transmission Date: 20190417
  Serious: No
  Sender: FDA-Public Use
  Company Number: US-PURDUE-USA-2018-0144479

PATIENT
  Age: 63 Year
  Sex: Female

DRUGS (1)
  1. BUTRANS [Suspect]
     Active Substance: BUPRENORPHINE
     Indication: PAIN
     Dosage: 10 MCG/HR, WEEKLY
     Route: 062
     Dates: start: 201805

REACTIONS (8)
  - Application site discolouration [Not Recovered/Not Resolved]
  - Application site vesicles [Not Recovered/Not Resolved]
  - Application site pruritus [Not Recovered/Not Resolved]
  - Product quality issue [Not Recovered/Not Resolved]
  - Application site pain [Not Recovered/Not Resolved]
  - Product adhesion issue [Unknown]
  - Application site erythema [Not Recovered/Not Resolved]
  - Application site haemorrhage [Not Recovered/Not Resolved]

NARRATIVE: CASE EVENT DATE: 20180803
